FAERS Safety Report 4544059-X (Version None)
Quarter: 2005Q1

REPORT INFORMATION
  Report Type: 
  Country: None (occurrence: None)
  Receive Date: 20050104
  Receipt Date: 20041203
  Transmission Date: 20050727
  Serious: Yes (Other)
  Sender: FDA-Public Use
  Company Number: GB-JNJFOC-20041201748

PATIENT
  Sex: Female
  Weight: 45 kg

DRUGS (6)
  1. RISPERDAL [Suspect]
     Dosage: TAKEN AT NIGHT
     Route: 049
  2. RISPERDAL [Suspect]
     Dosage: 0.5 MG MANE AND 1.0 MG NOCTE
     Route: 049
  3. RISPERDAL [Suspect]
     Dosage: TAKEN AT NIGHT
     Route: 049
  4. RISPERDAL [Suspect]
     Route: 049
  5. RISPERDAL [Suspect]
     Indication: AUTISM
     Dosage: DOSE: 0.4 ML MANE AND 0.6 ML NOCTE
     Route: 049
  6. STRATTERA [Concomitant]
     Indication: ATTENTION DEFICIT/HYPERACTIVITY DISORDER

REACTIONS (2)
  - DRUG WITHDRAWAL SYNDROME [None]
  - DYSKINESIA [None]
